FAERS Safety Report 5714157-3 (Version None)
Quarter: 2008Q2

REPORT INFORMATION
  Report Type: 
  Country: None (occurrence: None)
  Receive Date: 20080423
  Receipt Date: 20070508
  Transmission Date: 20081010
  Serious: No
  Sender: FDA-Public Use
  Company Number: US-KINGPHARMUSA00001-K200700566

PATIENT

DRUGS (1)
  1. SKELAXIN [Suspect]
     Dosage: 400 MG, SINGLE
     Route: 048
     Dates: start: 20070508, end: 20070508

REACTIONS (3)
  - EXPIRED DRUG ADMINISTERED [None]
  - NO ADVERSE EVENT [None]
  - WRONG DRUG ADMINISTERED [None]
